FAERS Safety Report 18920860 (Version 1)
Quarter: 2021Q1

REPORT INFORMATION
  Report Type: Spontaneous
  Country: US (occurrence: US)
  Receive Date: 20210222
  Receipt Date: 20210222
  Transmission Date: 20210420
  Serious: No
  Sender: FDA-Public Use
  Company Number: US-ALLERGAN-2015459US

PATIENT
  Sex: Male

DRUGS (3)
  1. EYLEA [Concomitant]
     Active Substance: AFLIBERCEPT
     Indication: MACULAR OEDEMA
  2. OZURDEX [Suspect]
     Active Substance: DEXAMETHASONE
     Indication: RETINAL VEIN OCCLUSION
     Dosage: 0.7 MG, SINGLE
     Route: 031
     Dates: start: 20200408, end: 20200408
  3. EYLEA [Concomitant]
     Active Substance: AFLIBERCEPT
     Indication: RETINAL VEIN OCCLUSION
     Dosage: 2 MG/0.05 ML EVERY 6 WEEKS
     Dates: start: 20200408

REACTIONS (1)
  - Off label use [Unknown]
